FAERS Safety Report 13780040 (Version 1)
Quarter: 2017Q3

REPORT INFORMATION
  Report Type: Spontaneous
  Country: JP (occurrence: JP)
  Receive Date: 20170723
  Receipt Date: 20170723
  Transmission Date: 20171127
  Serious: Yes (Other)
  Sender: FDA-Public Use
  Company Number: JP-MYLANLABS-2017M1042260

PATIENT

DRUGS (2)
  1. ALENDRONATE [Suspect]
     Active Substance: ALENDRONATE SODIUM
     Indication: PRODUCT USED FOR UNKNOWN INDICATION
     Dosage: 35 MG, QW
     Route: 065
  2. ELDECALCITOL [Suspect]
     Active Substance: ELDECALCITOL
     Indication: PRODUCT USED FOR UNKNOWN INDICATION
     Dosage: 0.75 ?G, UNK
     Route: 065

REACTIONS (2)
  - Renal disorder [Recovering/Resolving]
  - Hypercalcaemia [Recovered/Resolved]
